FAERS Safety Report 4841399-1 (Version None)
Quarter: 2005Q4

REPORT INFORMATION
  Report Type: 
  Country: None (occurrence: None)
  Receive Date: 20051130
  Receipt Date: 20051117
  Transmission Date: 20060501
  Serious: Yes (Life-Threatening, Hospitalization)
  Sender: FDA-Public Use
  Company Number: BE-MERCK-0511BEL00007

PATIENT
  Age: 65 Year
  Sex: Male
  Weight: 68 kg

DRUGS (4)
  1. COZAAR [Suspect]
     Indication: HYPERTENSION
     Route: 048
     Dates: start: 20030710
  2. NISOLDIPINE [Concomitant]
     Indication: ANGINA PECTORIS
     Route: 048
     Dates: end: 20050918
  3. ASPIRIN [Concomitant]
     Indication: WALLENBERG SYNDROME
     Route: 048
     Dates: start: 19990101, end: 20050918
  4. ASPIRIN [Concomitant]
     Indication: CEREBRAL INFARCTION
     Route: 048
     Dates: start: 19990101, end: 20050918

REACTIONS (1)
  - ACUTE CORONARY SYNDROME [None]
